FAERS Safety Report 6827978-0 (Version None)
Quarter: 2010Q3

REPORT INFORMATION
  Report Type: 
  Country: None (occurrence: None)
  Receive Date: 20100709
  Receipt Date: 20100701
  Transmission Date: 20110219
  Serious: Yes (Hospitalization)
  Sender: FDA-Public Use
  Company Number: A0869099A

PATIENT
  Sex: Female
  Weight: 90 kg

DRUGS (3)
  1. SERETIDE [Suspect]
     Indication: BRONCHITIS
     Dosage: 1PUFF TWICE PER DAY
     Dates: start: 20090701
  2. BEROTEC [Concomitant]
     Dosage: 10DROP SIX TIMES PER DAY
     Route: 055
     Dates: start: 20100424
  3. ATROVENT [Concomitant]
     Dosage: 40DROP SIX TIMES PER DAY
     Route: 055
     Dates: start: 20100424

REACTIONS (2)
  - BRONCHITIS [None]
  - LUNG INFECTION [None]
